FAERS Safety Report 19986652 (Version 1)
Quarter: 2021Q4

REPORT INFORMATION
  Report Type: Spontaneous
  Country: US (occurrence: US)
  Receive Date: 20211022
  Receipt Date: 20211022
  Transmission Date: 20220303
  Serious: No
  Sender: FDA-Public Use
  Company Number: US-ENDO PHARMACEUTICALS INC-2021-011611

PATIENT
  Age: 43 Year
  Sex: Female
  Weight: 61.22 kg

DRUGS (5)
  1. QWO [Suspect]
     Active Substance: COLLAGENASE CLOSTRIDIUM HISTOLYTICUM-AAES
     Indication: Peau d^orange
     Dosage: UNK, UNKNOWN (TREATMENT ONE)
     Route: 065
     Dates: start: 20210416
  2. QWO [Suspect]
     Active Substance: COLLAGENASE CLOSTRIDIUM HISTOLYTICUM-AAES
     Dosage: UNK, UNKNOWN (TREATMENT TWO)
     Route: 065
     Dates: start: 20210510
  3. QWO [Suspect]
     Active Substance: COLLAGENASE CLOSTRIDIUM HISTOLYTICUM-AAES
     Dosage: UNK, UNKNOWN (TREATMENT THREE)
     Route: 065
     Dates: start: 20210602
  4. MAXALT [Concomitant]
     Active Substance: RIZATRIPTAN BENZOATE
     Indication: Migraine
     Dosage: UNK UNKNOWN, UNKNOWN
     Route: 065
  5. VITAMINS [Concomitant]
     Active Substance: VITAMINS
     Indication: Product used for unknown indication
     Dosage: UNK UNKNOWN, UNKNOWN
     Route: 065

REACTIONS (4)
  - Capsular contracture associated with breast implant [Unknown]
  - Injection site bruising [Not Recovered/Not Resolved]
  - Skin discolouration [Unknown]
  - Drug ineffective [Unknown]

NARRATIVE: CASE EVENT DATE: 20210101
